FAERS Safety Report 4877771-3 (Version None)
Quarter: 2006Q1

REPORT INFORMATION
  Report Type: 
  Country: None (occurrence: None)
  Receive Date: 20060109
  Receipt Date: 20051227
  Transmission Date: 20060701
  Serious: Yes (Other)
  Sender: FDA-Public Use
  Company Number: 2006000312

PATIENT
  Sex: Male

DRUGS (1)
  1. VIAGRA [Suspect]
     Indication: ILL-DEFINED DISORDER
     Dosage: (50 MG), ORAL
     Route: 048

REACTIONS (4)
  - DRUG EFFECT DECREASED [None]
  - MIGRAINE [None]
  - MULTIPLE SCLEROSIS [None]
  - VISION BLURRED [None]
